FAERS Safety Report 11934607 (Version 1)
Quarter: 2016Q1

REPORT INFORMATION
  Report Type: Spontaneous
  Country: US (occurrence: None)
  Receive Date: 20160120
  Receipt Date: 20160120
  Transmission Date: 20160526
  Serious: Yes (Disabling)
  Sender: FDA-Public Use
  Company Number: None

PATIENT
  Age: 40 Year
  Sex: Male
  Weight: 70.31 kg

DRUGS (5)
  1. FISH OIL [Concomitant]
     Active Substance: FISH OIL
  2. RED YEAST RICE [Concomitant]
     Active Substance: DIETARY SUPPLEMENT
  3. TUMERIC [Concomitant]
     Active Substance: TURMERIC
  4. FIBER [Concomitant]
     Active Substance: PSYLLIUM HUSK
  5. DULOXETINE HYDROCHLORIDE. [Suspect]
     Active Substance: DULOXETINE HYDROCHLORIDE
     Indication: DEPRESSION
     Dosage: 1 PILL, TWICE DAILY, TAKEN BY MOUTH
     Dates: start: 20150814, end: 20160114

REACTIONS (16)
  - Hyperhidrosis [None]
  - Chills [None]
  - Headache [None]
  - Disturbance in attention [None]
  - Weight increased [None]
  - Irritability [None]
  - Loss of libido [None]
  - Apathy [None]
  - Personality disorder [None]
  - Tinnitus [None]
  - Feeling abnormal [None]
  - Product substitution issue [None]
  - Affective disorder [None]
  - Dysgeusia [None]
  - Nausea [None]
  - Vertigo [None]

NARRATIVE: CASE EVENT DATE: 20160118
